FAERS Safety Report 10185161 (Version 1)
Quarter: 2014Q2

REPORT INFORMATION
  Report Type: Spontaneous
  Country: US (occurrence: None)
  Receive Date: 20140520
  Receipt Date: 20140520
  Transmission Date: 20141212
  Serious: No
  Sender: FDA-Public Use
  Company Number: None

PATIENT
  Age: 58 Year
  Sex: Female

DRUGS (1)
  1. HUMIRA [Suspect]
     Indication: RHEUMATOID ARTHRITIS
     Dosage: 40MG, EVERY OTHER WEEK, SQ
     Route: 058
     Dates: start: 20130306, end: 20140430

REACTIONS (3)
  - Rash [None]
  - Arthritis infective [None]
  - Acne [None]
